FAERS Safety Report 24338512 (Version 4)
Quarter: 2025Q3

REPORT INFORMATION
  Report Type: Report from Study
  Country: KR (occurrence: KR)
  Receive Date: 20240919
  Receipt Date: 20250916
  Transmission Date: 20251020
  Serious: Yes (Other)
  Sender: TAKEDA
  Company Number: KR-TAKEDA-2024TUS093071

PATIENT
  Age: 30 Year
  Sex: Male
  Weight: 79 kg

DRUGS (10)
  1. VEDOLIZUMAB [Suspect]
     Active Substance: VEDOLIZUMAB
     Indication: Crohn^s disease
     Dates: start: 20220328, end: 20230206
  2. AZATHIOPRINE [Concomitant]
     Active Substance: AZATHIOPRINE
     Dosage: 50 MILLIGRAM, QD
     Dates: start: 20220328
  3. AZATHIOPRINE [Concomitant]
     Active Substance: AZATHIOPRINE
     Dosage: 25 MILLIGRAM, QD
     Dates: start: 20220328
  4. Cycin [Concomitant]
     Indication: Abdominal abscess
     Dosage: 500 MILLIGRAM, BID
     Dates: start: 20221019, end: 20221117
  5. Cycin [Concomitant]
     Dosage: 500 MILLIGRAM, BID
     Dates: start: 20230206, end: 20230224
  6. Flasinyl [Concomitant]
     Indication: Abdominal abscess
     Dosage: 500 MILLIGRAM, BID
     Dates: start: 20221019, end: 20221101
  7. Fexuclue [Concomitant]
     Indication: Gastrooesophageal reflux disease
     Dosage: 40 MILLIGRAM, QD
     Dates: start: 20221019, end: 20221215
  8. Fexuclue [Concomitant]
     Indication: Abdominal abscess
  9. INFLIXIMAB [Concomitant]
     Active Substance: INFLIXIMAB
  10. Citopcin [Concomitant]
     Indication: Anal abscess
     Dosage: 200 MILLILITER, BID
     Dates: start: 20230209, end: 20230210

REACTIONS (1)
  - Abdominal abscess [Recovered/Resolved]

NARRATIVE: CASE EVENT DATE: 20221014
